FAERS Safety Report 14443761 (Version 1)
Quarter: 2018Q1

REPORT INFORMATION
  Report Type: Spontaneous
  Country: US (occurrence: US)
  Receive Date: 20180125
  Receipt Date: 20180125
  Transmission Date: 20180509
  Serious: Yes (Other)
  Sender: FDA-Public Use
  Company Number: US-BEH-2018086982

PATIENT
  Age: 58 Year
  Sex: Male

DRUGS (1)
  1. CARIMUNE NF [Suspect]
     Active Substance: HUMAN IMMUNOGLOBULIN G
     Indication: PRIMARY IMMUNODEFICIENCY SYNDROME
     Dosage: 42 G, UNK
     Route: 042
     Dates: start: 20180105

REACTIONS (8)
  - Vein disorder [Unknown]
  - Infusion site swelling [Unknown]
  - Paraesthesia [Unknown]
  - Infusion site pain [Unknown]
  - Thrombosis [Unknown]
  - Peripheral swelling [Unknown]
  - Erythema [Unknown]
  - Hypoaesthesia [Unknown]

NARRATIVE: CASE EVENT DATE: 201801
